FAERS Safety Report 8261320-6 (Version None)
Quarter: 2012Q2

REPORT INFORMATION
  Report Type: 
  Country: None (occurrence: None)
  Receive Date: 20120405
  Receipt Date: 20120328
  Transmission Date: 20120825
  Serious: Yes (Hospitalization, Other)
  Sender: FDA-Public Use
  Company Number: US-BAYER-2011-052221

PATIENT
  Age: 44 Year
  Sex: Female
  Weight: 70.295 kg

DRUGS (3)
  1. AMBIEN [Concomitant]
  2. YAZ [Suspect]
     Indication: CONTRACEPTION
     Dosage: UNK
     Route: 048
     Dates: start: 20080901, end: 20090201
  3. LEXAPRO [Concomitant]

REACTIONS (5)
  - ANXIETY [None]
  - TRANSIENT ISCHAEMIC ATTACK [None]
  - CHOLECYSTECTOMY [None]
  - PAIN [None]
  - DEPRESSION [None]
